FAERS Safety Report 22172974 (Version 1)
Quarter: 2023Q2

REPORT INFORMATION
  Report Type: Spontaneous
  Country: ES (occurrence: ES)
  Receive Date: 20230404
  Receipt Date: 20230404
  Transmission Date: 20230721
  Serious: Yes (Hospitalization)
  Sender: FDA-Public Use
  Company Number: ES-AstraZeneca-2022A006614

PATIENT
  Age: 80 Year
  Sex: Female

DRUGS (38)
  1. OXALIPLATIN [Suspect]
     Active Substance: OXALIPLATIN
     Indication: Gastric cancer
     Dosage: 85.0 MG/M2  85 MG/M2 ON DAYS 1 AND 15 85 MG/M2 ON DAYS 1 AND 15 EVERY FOUR WEEKS
     Route: 042
     Dates: start: 20211118, end: 20211118
  2. OXALIPLATIN [Suspect]
     Active Substance: OXALIPLATIN
     Indication: Oesophageal carcinoma
     Dosage: 85.0 MG/M2  85 MG/M2 ON DAYS 1 AND 15 85 MG/M2 ON DAYS 1 AND 15 EVERY FOUR WEEKS
     Route: 042
     Dates: start: 20211215, end: 20211215
  3. DOCETAXEL [Suspect]
     Active Substance: DOCETAXEL
     Indication: Gastric cancer
     Dosage: 50.0 MG/M2  50 MG/M2 ON DAYS 1 AND 15 50 MG/M2 ON DAYS 1 AND 15 EVERY FOUR WEEKS
     Route: 042
     Dates: start: 20211118, end: 20211118
  4. DOCETAXEL [Suspect]
     Active Substance: DOCETAXEL
     Indication: Oesophageal carcinoma
     Dosage: 50.0 MG/M2  50 MG/M2 ON DAYS 1 AND 15 50 MG/M2 ON DAYS 1 AND 15 EVERY FOUR WEEKS
     Route: 042
     Dates: start: 20211215, end: 20211215
  5. DURVALUMAB [Suspect]
     Active Substance: DURVALUMAB
     Indication: Oesophageal carcinoma
     Dosage: 1500MG
     Route: 042
     Dates: start: 20211118, end: 20211118
  6. DURVALUMAB [Suspect]
     Active Substance: DURVALUMAB
     Indication: Gastric cancer
  7. FLUOROURACIL [Suspect]
     Active Substance: FLUOROURACIL
     Indication: Oesophageal carcinoma
     Dosage: 2600.0 MG/M2  2600 MG/M2 ON DAYS 1 AND 15 2600 MG/M2 ON DAYS 1 AND 15 EVERY FOUR WEEKS
     Route: 042
     Dates: start: 20211118, end: 20211119
  8. FLUOROURACIL [Suspect]
     Active Substance: FLUOROURACIL
     Indication: Gastric cancer
     Dosage: 2600.0 MG/M2  2600 MG/M2 ON DAYS 1 AND 15 2600 MG/M2 ON DAYS 1 AND 15 EVERY FOUR WEEKS
     Route: 042
     Dates: start: 20211215, end: 20211216
  9. LEUCOVORIN [Concomitant]
     Active Substance: LEUCOVORIN
     Indication: Product used for unknown indication
     Dosage: 200.0 MG/M2  200 MG/M2 ON DAYS 1 AND 15 200 MG/M2 ON DAYS 1 AND 15 EVERY FOUR WEEKS
     Route: 042
     Dates: start: 20211215, end: 20211215
  10. LEUCOVORIN [Concomitant]
     Active Substance: LEUCOVORIN
     Dosage: 200.0 MG/M2  200 MG/M2 ON DAYS 1 AND 15 200 MG/M2 ON DAYS 1 AND 15 EVERY FOUR WEEKS
     Route: 042
     Dates: start: 20211118, end: 20211118
  11. SIMVASTATIN [Concomitant]
     Active Substance: SIMVASTATIN
     Indication: Dyslipidaemia
     Route: 048
  12. ALBUTEROL [Concomitant]
     Active Substance: ALBUTEROL
     Indication: Dyspnoea
     Dosage: 100 UG AS REQUIRED
     Route: 055
     Dates: start: 20220104, end: 20220105
  13. NETUPITANT [Concomitant]
     Active Substance: NETUPITANT
     Indication: Vomiting
     Dosage: 300.0 MG  EVERY CYCLE THE PATIENT HAS CHEMO
     Route: 042
     Dates: start: 20211118
  14. CODEINE [Concomitant]
     Active Substance: CODEINE
     Indication: Pain
     Dates: start: 20220106, end: 20220110
  15. IRON III [Concomitant]
     Indication: Anaemia
     Dosage: 100.0 ML  ONCE EVERY 48H
     Dates: start: 20220105, end: 20220110
  16. FUROSEMIDE [Concomitant]
     Active Substance: FUROSEMIDE
     Indication: Oedema
     Route: 042
     Dates: start: 20220104, end: 20220107
  17. FUROSEMIDE [Concomitant]
     Active Substance: FUROSEMIDE
     Indication: Transfusion
     Dates: start: 20220111, end: 20220113
  18. APIXABAN [Concomitant]
     Active Substance: APIXABAN
     Indication: Cardiac fibrillation
     Route: 048
  19. MONOPROST COLIRIO [Concomitant]
     Indication: Prophylaxis
     Dosage: 50 UG DAILY
     Route: 047
     Dates: start: 2005
  20. HYDROCHLOROTHIAZIDE [Concomitant]
     Active Substance: HYDROCHLOROTHIAZIDE
     Indication: Hypertension
     Route: 048
     Dates: start: 1980
  21. HEMATIES TRANSFUSION [Concomitant]
     Indication: Anaemia
     Dosage: 1.0 BAG  ONCE/SINGLE ADMINISTRATION
     Dates: start: 20220104, end: 20220104
  22. COVID- VACCINE 3 DOSE [Concomitant]
     Indication: COVID-19
     Dosage: 1.0 UNKNOWN  ONCE/SINGLE ADMINISTRATION
     Dates: start: 20211129, end: 20211129
  23. OMEPRAZOLE [Concomitant]
     Active Substance: OMEPRAZOLE
     Indication: Prophylaxis
     Route: 048
  24. BUDESONIDE [Concomitant]
     Active Substance: BUDESONIDE
     Indication: Dyspnoea
     Dosage: 200 UG TWO TIMES A DAY
     Route: 055
     Dates: start: 20220104, end: 20220105
  25. FUROSEMIDE [Concomitant]
     Active Substance: FUROSEMIDE
     Indication: Oedema
     Dosage: UNKNOWN  UNKNOWN
     Route: 048
     Dates: start: 20220104, end: 20220104
  26. NUTRITIONAL SUPPLEMENT (INGREDIENTS UNKNOWN) [Concomitant]
     Indication: Nutritional supplementation
     Dosage: DAILY
     Route: 048
     Dates: start: 20211228
  27. PALONOSETRON [Concomitant]
     Active Substance: PALONOSETRON
     Indication: Vomiting
     Dosage: 0.5 MG  EVERY CYCLE THE PATIENT HAS CHEMO
     Route: 048
     Dates: start: 20211118
  28. ACETAMINOPHEN [Concomitant]
     Active Substance: ACETAMINOPHEN
     Indication: Pyrexia
     Route: 042
     Dates: start: 20220104, end: 20220110
  29. LOSARTAN [Concomitant]
     Active Substance: LOSARTAN
     Indication: Hypertension
     Dates: start: 20220110, end: 20220110
  30. RED BLOOD CELLS TRANSFUSION [Concomitant]
     Indication: Anaemia
     Dosage: 1.0 BAG  ONCE/SINGLE ADMINISTRATION
     Dates: start: 20220105, end: 20220105
  31. RED BLOOD CELLS TRANSFUSION [Concomitant]
     Dosage: 1.0 BAG  ONCE/SINGLE ADMINISTRATION
     Route: 042
     Dates: start: 20220104, end: 20220104
  32. PREDNISONE [Concomitant]
     Active Substance: PREDNISONE
     Indication: Pruritus
     Route: 048
     Dates: start: 20211201, end: 20211208
  33. PREDNISONE [Concomitant]
     Active Substance: PREDNISONE
     Indication: Rash
     Route: 048
     Dates: start: 20211209, end: 20211214
  34. FERROGLYCINE [Concomitant]
     Indication: Anaemia
     Dosage: 100MG
     Dates: start: 20220107, end: 20220110
  35. VENOFER [Concomitant]
     Active Substance: IRON SUCROSE
     Indication: Anaemia
     Dosage: 100.0 MG  EVERY 48 HOURS
     Dates: start: 20220105, end: 20220110
  36. OLMESARTAN MEDOXOMIL [Concomitant]
     Active Substance: OLMESARTAN MEDOXOMIL
     Indication: Hypertension
     Route: 048
     Dates: start: 1980
  37. LOPERAMIDE HYDROCHLORIDE [Concomitant]
     Active Substance: LOPERAMIDE HYDROCHLORIDE
     Indication: Diarrhoea
     Dosage: UNKNOWN
     Route: 048
     Dates: start: 20211224, end: 20220103
  38. DEXAMETHASONE [Concomitant]
     Active Substance: DEXAMETHASONE
     Indication: Hypersensitivity
     Dosage: 12.0 MG  EVERY CYCLE THE PATIENT HAS CHEMO
     Route: 042
     Dates: start: 20211118

REACTIONS (1)
  - Cardiac failure [Recovered/Resolved]

NARRATIVE: CASE EVENT DATE: 20220104
